FAERS Safety Report 6854998-2 (Version None)
Quarter: 2010Q3

REPORT INFORMATION
  Report Type: 
  Country: None (occurrence: None)
  Receive Date: 20100717
  Receipt Date: 20080908
  Transmission Date: 20110219
  Serious: No
  Sender: FDA-Public Use
  Company Number: US-PFIZER INC-2008001053

PATIENT
  Sex: Female
  Weight: 52.98 kg

DRUGS (8)
  1. CHANTIX [Suspect]
     Indication: TOBACCO ABUSE
     Route: 048
     Dates: start: 20080102
  2. SPIRIVA [Concomitant]
  3. EVISTA [Concomitant]
  4. ATROVENT [Concomitant]
  5. ACETYLSALICYLIC ACID [Concomitant]
  6. XANAX [Concomitant]
  7. MONTELUKAST SODIUM [Concomitant]
  8. ADVAIR DISKUS 100/50 [Concomitant]

REACTIONS (5)
  - ABDOMINAL DISCOMFORT [None]
  - BREATH ODOUR [None]
  - DECREASED APPETITE [None]
  - DYSGEUSIA [None]
  - NAUSEA [None]
